FAERS Safety Report 4573690-0 (Version None)
Quarter: 2005Q1

REPORT INFORMATION
  Report Type: 
  Country: None (occurrence: None)
  Receive Date: 20050203
  Receipt Date: 20050124
  Transmission Date: 20050727
  Serious: Yes (Hospitalization)
  Sender: FDA-Public Use
  Company Number: 2005US000031

PATIENT
  Age: 7 Year
  Sex: Female
  Weight: 26.6 kg

DRUGS (9)
  1. PROGRAF [Suspect]
     Indication: PROPHYLAXIS AGAINST TRANSPLANT REJECTION
     Dosage: 4.00 MG BID, ORAL
     Route: 048
  2. ZENAPAX [Suspect]
     Indication: PROPHYLAXIS AGAINST TRANSPLANT REJECTION
  3. CELLCEPT [Suspect]
     Indication: PROPHYLAXIS AGAINST TRANSPLANT REJECTION
     Dosage: 750.00 MG, UID/QD, ORAL
     Route: 048
  4. PREDNISONE [Concomitant]
  5. VALGANCICLOVIR (VALGANCICLOVIR) [Concomitant]
  6. SEPTRA [Concomitant]
  7. ASPIIRIN [Concomitant]
  8. PRILOSEC [Concomitant]
  9. MAG PLUS PROTEIN [Concomitant]

REACTIONS (7)
  - ABDOMINAL PAIN [None]
  - BRAIN OEDEMA [None]
  - CEREBRAL VENTRICLE DILATATION [None]
  - DIARRHOEA [None]
  - ENCEPHALITIS [None]
  - MENTAL STATUS CHANGES [None]
  - ORAL INTAKE REDUCED [None]
